FAERS Safety Report 24845999 (Version 2)
Quarter: 2025Q1

REPORT INFORMATION
  Report Type: Spontaneous
  Country: US (occurrence: US)
  Receive Date: 20250115
  Receipt Date: 20250127
  Transmission Date: 20250408
  Serious: Yes (Other)
  Sender: TEVA
  Company Number: US-TEVA-VS-3285100

PATIENT
  Age: 58 Year
  Sex: Female

DRUGS (2)
  1. MYCOPHENOLATE MOFETIL [Suspect]
     Active Substance: MYCOPHENOLATE MOFETIL
     Indication: Immunosuppressant drug therapy
     Route: 065
  2. TACROLIMUS [Concomitant]
     Active Substance: TACROLIMUS
     Indication: Immunosuppressant drug therapy
     Route: 065

REACTIONS (6)
  - Gastrointestinal disorder [Recovered/Resolved]
  - Vitamin E deficiency [Recovered/Resolved]
  - Folate deficiency [Recovered/Resolved]
  - Vitamin A deficiency [Recovered/Resolved]
  - Vitamin B12 deficiency [Recovered/Resolved]
  - Vitamin D deficiency [Recovered/Resolved]
